FAERS Safety Report 8804943 (Version 1)
Quarter: 2012Q4

REPORT INFORMATION
  Report Type: 
  Country: CA (occurrence: CA)
  Receive Date: 20120924
  Receipt Date: 20120924
  Transmission Date: 20130627
  Serious: Yes (Other)
  Sender: FDA-Public Use
  Company Number: CA-ROCHE-1134970

PATIENT

DRUGS (2)
  1. CLONAZEPAM [Suspect]
     Indication: PRODUCT USED FOR UNKNOWN INDICATION
     Route: 064
  2. CLONAZEPAM [Suspect]
     Route: 063

REACTIONS (3)
  - Depressed level of consciousness [Unknown]
  - Maternal exposure timing unspecified [Unknown]
  - Exposure during breast feeding [Unknown]
